FAERS Safety Report 6751422-5 (Version None)
Quarter: 2010Q3

REPORT INFORMATION
  Report Type: 
  Country: None (occurrence: None)
  Receive Date: 20100602
  Receipt Date: 20090212
  Transmission Date: 20110219
  Serious: Yes (Hospitalization)
  Sender: FDA-Public Use
  Company Number: JP-ROCHE-608042

PATIENT
  Age: 21 Year
  Sex: Female
  Weight: 62 kg

DRUGS (10)
  1. CELLCEPT [Suspect]
     Indication: PROPHYLAXIS AGAINST TRANSPLANT REJECTION
     Route: 048
     Dates: start: 20070101
  2. RITUXAN [Suspect]
     Indication: PROPHYLAXIS AGAINST TRANSPLANT REJECTION
     Dosage: DRUG AS : RITUXAN INJECTION ; ROUTE : INJECTABLE (NOT OTHERWISE SPECIFIED)
     Route: 050
     Dates: start: 20070101
  3. GANCICLOVIR SODIUM [Suspect]
     Route: 065
     Dates: start: 20070301
  4. GANCICLOVIR SODIUM [Suspect]
     Route: 065
     Dates: start: 20070401
  5. GANCICLOVIR SODIUM [Suspect]
     Route: 065
     Dates: start: 20070801
  6. GANCICLOVIR SODIUM [Suspect]
     Route: 065
  7. SIMULECT [Concomitant]
     Dosage: ROUTE: INJECTABLE (NOT OTHERWISE SPECIFIED)
     Route: 050
     Dates: start: 20070101
  8. PROGRAF [Concomitant]
     Indication: PROPHYLAXIS AGAINST TRANSPLANT REJECTION
     Dosage: DOSE REDUCED
     Route: 065
     Dates: start: 20070101
  9. MEDROL [Concomitant]
     Indication: PROPHYLAXIS AGAINST TRANSPLANT REJECTION
     Route: 048
     Dates: start: 20070101
  10. PREDNISOLONE [Concomitant]
     Indication: PROPHYLAXIS AGAINST TRANSPLANT REJECTION
     Dosage: DOSE FORM: ORAL FORMULATION (NOT OTHERWISE SPECIFIED
     Route: 065
     Dates: start: 20070101

REACTIONS (6)
  - ANAEMIA [None]
  - ARTHRALGIA [None]
  - CYTOMEGALOVIRUS ENTEROCOLITIS [None]
  - CYTOMEGALOVIRUS INFECTION [None]
  - ERYTHEMA MULTIFORME [None]
  - PNEUMONIA CYTOMEGALOVIRAL [None]
